FAERS Safety Report 9789163 (Version 3)
Quarter: 2014Q1

REPORT INFORMATION
  Report Type: Report from Study
  Country: CM (occurrence: CM)
  Receive Date: 20131230
  Receipt Date: 20140106
  Transmission Date: 20141002
  Serious: Yes (Death, Hospitalization, Other)
  Sender: FDA-Public Use
  Company Number: CM-GILEAD-2013-0071446

PATIENT
  Age: 32 Year
  Sex: Female

DRUGS (10)
  1. EMTRICITABINE/TENOFOVIR DISOPROXIL FUMARATE [Suspect]
     Indication: HIV INFECTION
     Dosage: 1 DF, QD
     Route: 048
     Dates: start: 20120911, end: 20131027
  2. DARUNAVIR [Suspect]
     Indication: HIV INFECTION
     Dosage: 800 MG, QD
     Route: 048
     Dates: start: 20120911, end: 20130527
  3. DARUNAVIR [Suspect]
     Dosage: 1200 MG, QD
     Route: 048
     Dates: start: 20130528, end: 20131027
  4. RITONAVIR [Suspect]
     Indication: HIV INFECTION
     Dosage: 100 MG, QD
     Route: 048
     Dates: start: 20120911, end: 20130527
  5. RITONAVIR [Suspect]
     Dosage: 200 MG, QD
     Route: 048
     Dates: start: 20130527, end: 20131027
  6. ETRAVIRINE [Suspect]
     Indication: HIV INFECTION
     Dosage: 400 MG, QD
     Route: 048
     Dates: start: 20130528, end: 20131027
  7. LAMIVUDINE [Suspect]
     Indication: HIV INFECTION
     Dosage: 300 MG, QD
     Route: 048
     Dates: start: 20131022, end: 20131027
  8. CO-TRIMOXAZOLE [Concomitant]
     Indication: OPPORTUNISTIC INFECTION PROPHYLAXIS
     Dosage: 960 MG, QD
     Route: 048
     Dates: start: 2010
  9. AMPICILLIN [Concomitant]
     Indication: INFECTION PROPHYLAXIS
     Dosage: UNK
     Dates: start: 20131027, end: 20131027
  10. ACYCLOVIR                          /00587301/ [Concomitant]

REACTIONS (2)
  - Postpartum haemorrhage [Fatal]
  - Stillbirth [Recovered/Resolved]
